FAERS Safety Report 4432512-9 (Version None)
Quarter: 2004Q3

REPORT INFORMATION
  Report Type: 
  Country: None (occurrence: None)
  Receive Date: 20040817
  Receipt Date: 20040805
  Transmission Date: 20050211
  Serious: Yes (Other)
  Sender: FDA-Public Use
  Company Number: 200410286BBE

PATIENT
  Sex: Male

DRUGS (6)
  1. KONYNE [Suspect]
     Indication: FACTOR IX DEFICIENCY
     Dates: start: 19780101, end: 19860101
  2. KONYNE [Suspect]
     Indication: FACTOR IX DEFICIENCY
     Dates: start: 19860101, end: 19900101
  3. FACTOR IX COMPLEX [Suspect]
     Indication: FACTOR IX DEFICIENCY
     Dates: start: 19780101, end: 19860101
  4. FACTOR IX COMPLEX [Suspect]
     Indication: FACTOR IX DEFICIENCY
     Dates: start: 19860101, end: 19900101
  5. ALPHANINE [Suspect]
     Indication: FACTOR IX DEFICIENCY
     Dates: start: 19780101, end: 19860101
  6. ALPHANINE [Suspect]
     Indication: FACTOR IX DEFICIENCY
     Dates: start: 19860101, end: 19900101

REACTIONS (1)
  - HEPATITIS C VIRUS [None]
